FAERS Safety Report 12918096 (Version 1)
Quarter: 2016Q4

REPORT INFORMATION
  Report Type: Spontaneous
  Country: CN (occurrence: CN)
  Receive Date: 20161107
  Receipt Date: 20161107
  Transmission Date: 20170207
  Serious: Yes (Other)
  Sender: FDA-Public Use
  Company Number: CN-ASTRAZENECA-2016SF16654

PATIENT
  Age: 1008 Month
  Sex: Male
  Weight: 69 kg

DRUGS (4)
  1. TICAGRELOR [Suspect]
     Active Substance: TICAGRELOR
     Indication: THROMBOSIS PROPHYLAXIS
     Route: 048
     Dates: start: 20160315, end: 20160626
  2. TICAGRELOR [Suspect]
     Active Substance: TICAGRELOR
     Indication: PLATELET DISORDER
     Route: 048
     Dates: start: 20160315, end: 20160626
  3. ASPIRIN. [Suspect]
     Active Substance: ASPIRIN
     Indication: THROMBOSIS PROPHYLAXIS
     Route: 048
     Dates: start: 20160315, end: 20160619
  4. ASPIRIN. [Suspect]
     Active Substance: ASPIRIN
     Indication: PLATELET DISORDER
     Route: 048
     Dates: start: 20160315, end: 20160619

REACTIONS (3)
  - Faeces discoloured [Recovering/Resolving]
  - Gastrointestinal haemorrhage [Unknown]
  - Anaemia [Recovering/Resolving]

NARRATIVE: CASE EVENT DATE: 201606
